FAERS Safety Report 9468400 (Version 1)
Quarter: 2013Q3

REPORT INFORMATION
  Report Type: Spontaneous
  Country: TR (occurrence: TR)
  Receive Date: 20130821
  Receipt Date: 20130821
  Transmission Date: 20140515
  Serious: Yes (Hospitalization)
  Sender: FDA-Public Use
  Company Number: PHHY2013TR088341

PATIENT
  Sex: Male

DRUGS (2)
  1. METHYLPREDNISOLONE [Suspect]
     Indication: ANAPHYLACTIC REACTION
     Dosage: 40 MG, UNK
     Route: 042
  2. CHLORPHENAMINE MALEATE [Concomitant]
     Indication: HYPERSENSITIVITY
     Dosage: 10 MG, UNK
     Route: 042

REACTIONS (5)
  - Acute myocardial infarction [Recovered/Resolved]
  - Chest pain [Recovered/Resolved]
  - Hypotension [Recovered/Resolved]
  - Ventricular dyskinesia [Recovered/Resolved]
  - Mitral valve incompetence [Recovered/Resolved]
